FAERS Safety Report 25024616 (Version 1)
Quarter: 2025Q1

REPORT INFORMATION
  Report Type: Spontaneous
  Country: US (occurrence: None)
  Receive Date: 20250228
  Receipt Date: 20250228
  Transmission Date: 20250409
  Serious: Yes (Hospitalization)
  Sender: FDA-CTU
  Company Number: None

PATIENT
  Age: 53 Year
  Sex: Male
  Weight: 136 kg

DRUGS (1)
  1. DICLOFENAC SODIUM [Suspect]
     Active Substance: DICLOFENAC SODIUM
     Indication: Pain
     Dosage: FREQUENCY : TWICE A DAY;?
     Route: 048

REACTIONS (10)
  - Anaphylactic reaction [None]
  - Pruritus [None]
  - Wheezing [None]
  - Rash [None]
  - Tremor [None]
  - Hyperhidrosis [None]
  - Nausea [None]
  - Vision blurred [None]
  - Hypotension [None]
  - Blood pressure immeasurable [None]

NARRATIVE: CASE EVENT DATE: 20241121
